FAERS Safety Report 25082776 (Version 1)
Quarter: 2025Q1

REPORT INFORMATION
  Report Type: Spontaneous
  Country: US (occurrence: US)
  Receive Date: 20250317
  Receipt Date: 20250317
  Transmission Date: 20250409
  Serious: Yes (Other)
  Sender: TEVA
  Company Number: US-TEVA-VS-3307787

PATIENT
  Age: 11 Year
  Sex: Female

DRUGS (3)
  1. GUANFACINE [Suspect]
     Active Substance: GUANFACINE
     Indication: Attention deficit hyperactivity disorder
     Route: 048
  2. FLUOXETINE [Concomitant]
     Active Substance: FLUOXETINE HYDROCHLORIDE
     Indication: Product used for unknown indication
  3. VYVANSE [Concomitant]
     Active Substance: LISDEXAMFETAMINE DIMESYLATE
     Indication: Product used for unknown indication

REACTIONS (4)
  - Self-destructive behaviour [Unknown]
  - Abnormal behaviour [Unknown]
  - Impulse-control disorder [Unknown]
  - Impulsive behaviour [Unknown]

NARRATIVE: CASE EVENT DATE: 20250301
